FAERS Safety Report 7435649-5 (Version None)
Quarter: 2011Q2

REPORT INFORMATION
  Report Type: 
  Country: None (occurrence: None)
  Receive Date: 20110425
  Receipt Date: 20110330
  Transmission Date: 20111010
  Serious: Yes (Life-Threatening, Hospitalization, Disabling, Other)
  Sender: FDA-Public Use
  Company Number: BR-BAYER-200924647LA

PATIENT
  Age: 42 Year
  Sex: Male

DRUGS (15)
  1. SOLU-MEDROL [Suspect]
     Indication: EXTREMITY NECROSIS
  2. SOLU-MEDROL [Suspect]
     Indication: MASS
  3. LORAX [LORAZEPAM] [Concomitant]
     Indication: SLEEP DISORDER
     Dosage: 2 MG, QD
     Route: 048
     Dates: start: 20080101
  4. PANTOPRAZOLE [Concomitant]
     Indication: PROPHYLAXIS
     Dosage: 40 MG, QD
     Route: 048
     Dates: start: 20050101
  5. TRAZODONE HCL [Concomitant]
     Indication: SLEEP DISORDER
     Dosage: 50 MG, QD
     Route: 048
     Dates: start: 20090301
  6. VENLAFAXINE HCL [Concomitant]
     Indication: DEPRESSION
     Dosage: 1 DF, QD
     Route: 048
     Dates: start: 20090301
  7. BETAFERON [Suspect]
     Indication: MULTIPLE SCLEROSIS
     Dosage: BETAJECT
     Route: 058
     Dates: start: 20050101, end: 20090315
  8. BETAFERON [Suspect]
     Dosage: UNK
     Route: 058
     Dates: start: 20100901
  9. LYRICA [Concomitant]
     Indication: DEPRESSION
     Dosage: 225 MG, QD
     Route: 048
     Dates: start: 20090101
  10. BETAFERON [Suspect]
     Dosage: BETAJECT
     Route: 058
     Dates: start: 20091001, end: 20100615
  11. SOLU-MEDROL [Suspect]
     Indication: SKIN NECROSIS
     Dosage: PULSE THERAPY
     Route: 042
     Dates: start: 20090201, end: 20100415
  12. ENALAPRIL COMP [Concomitant]
     Indication: BLOOD PRESSURE INCREASED
     Dosage: 40 MG, QD
     Route: 048
     Dates: start: 20050101
  13. DIAZEPAM [Concomitant]
     Indication: MUSCLE RELAXANT THERAPY
     Dosage: 10 MG, QD
     Route: 048
     Dates: start: 20050101
  14. GABAPENTIN [Concomitant]
     Indication: PAIN
     Dosage: 1600 MG, QD
     Route: 048
     Dates: start: 20040101
  15. LIORESAL [Concomitant]
     Indication: MUSCLE SPASMS
     Dosage: 40 MG, QD
     Route: 048
     Dates: start: 20050101

REACTIONS (44)
  - MUSCULAR WEAKNESS [None]
  - MOBILITY DECREASED [None]
  - BLINDNESS [None]
  - DECREASED APPETITE [None]
  - AMNESIA [None]
  - MUSCULOSKELETAL PAIN [None]
  - FATIGUE [None]
  - EXTREMITY NECROSIS [None]
  - COMA [None]
  - BRAIN INJURY [None]
  - MEMORY IMPAIRMENT [None]
  - NAUSEA [None]
  - MULTIPLE SCLEROSIS RELAPSE [None]
  - ASTHENIA [None]
  - SPEECH DISORDER [None]
  - HYPOAESTHESIA [None]
  - BLOOD POTASSIUM DECREASED [None]
  - MULTIPLE SCLEROSIS [None]
  - INJECTION SITE HAEMORRHAGE [None]
  - MUSCLE RIGIDITY [None]
  - PARKINSONISM [None]
  - BLOOD SODIUM DECREASED [None]
  - BRAIN OEDEMA [None]
  - WEIGHT DECREASED [None]
  - INJECTION SITE INFECTION [None]
  - FIBROSIS [None]
  - VOMITING [None]
  - DIARRHOEA [None]
  - INJECTION SITE SCAR [None]
  - INJECTION SITE ABSCESS [None]
  - INJECTION SITE INFLAMMATION [None]
  - NERVE COMPRESSION [None]
  - MASS [None]
  - MUSCLE SPASMS [None]
  - PAIN IN EXTREMITY [None]
  - DISORIENTATION [None]
  - INJECTION SITE NECROSIS [None]
  - BLOOD CALCIUM DECREASED [None]
  - BLOOD MAGNESIUM DECREASED [None]
  - QUADRIPLEGIA [None]
  - APHASIA [None]
  - INJECTION SITE PAIN [None]
  - INJECTION SITE SWELLING [None]
  - INJECTION SITE FIBROSIS [None]
